FAERS Safety Report 21398854 (Version 3)
Quarter: 2022Q4

REPORT INFORMATION
  Report Type: Spontaneous
  Country: US (occurrence: US)
  Receive Date: 20221001
  Receipt Date: 20221011
  Transmission Date: 20230113
  Serious: Yes (Other)
  Sender: FDA-Public Use
  Company Number: US-NOVARTISTESTPH-NVSC2022US218069

PATIENT
  Age: 84 Year
  Sex: Male

DRUGS (1)
  1. ZOMETA [Suspect]
     Active Substance: ZOLEDRONIC ACID
     Indication: Bone cancer
     Dosage: UNK
     Route: 065

REACTIONS (9)
  - Pain [Unknown]
  - Back pain [Not Recovered/Not Resolved]
  - Constipation [Not Recovered/Not Resolved]
  - Fatigue [Unknown]
  - Pigmentation disorder [Unknown]
  - Adverse drug reaction [Unknown]
  - Free prostate-specific antigen decreased [Unknown]
  - Hypokinesia [Unknown]
  - Flushing [Unknown]

NARRATIVE: CASE EVENT DATE: 20220929
